FAERS Safety Report 7349991-X (Version None)
Quarter: 2011Q1

REPORT INFORMATION
  Report Type: 
  Country: None (occurrence: None)
  Receive Date: 20110314
  Receipt Date: 20110228
  Transmission Date: 20110831
  Serious: Yes (Life-Threatening)
  Sender: FDA-Public Use
  Company Number: JP-BRISTOL-MYERS SQUIBB COMPANY-15589419

PATIENT
  Age: 58 Year
  Sex: Female

DRUGS (2)
  1. MITOMYCIN [Suspect]
     Indication: ENDOMETRIAL CANCER
     Dosage: MITOMYCIN INJ
     Dates: start: 20100902, end: 20110113
  2. IRINOTECAN HCL [Suspect]
     Dates: start: 20100902, end: 20110113

REACTIONS (1)
  - THROMBOTIC MICROANGIOPATHY [None]
